FAERS Safety Report 5305594-X (Version None)
Quarter: 2007Q2

REPORT INFORMATION
  Report Type: 
  Country: None (occurrence: None)
  Receive Date: 20070416
  Receipt Date: 20070403
  Transmission Date: 20071010
  Serious: Yes (Life-Threatening, Hospitalization)
  Sender: FDA-Public Use
  Company Number: GXKR2007ES03141

PATIENT
  Age: 91 Year
  Sex: Female

DRUGS (4)
  1. PYRAZINAMIDE [Suspect]
     Indication: BONE TUBERCULOSIS
     Dosage: 1500 MG
  2. ISONIAZID [Suspect]
     Indication: BONE TUBERCULOSIS
     Dosage: 250 MG, QD
  3. RIFAMPICIN [Suspect]
     Indication: BONE TUBERCULOSIS
     Dosage: 600 MG, QD
  4. PYRIDOXINE (PYRIDOXINE) [Concomitant]

REACTIONS (4)
  - HYPERURICAEMIA [None]
  - LACTIC ACIDOSIS [None]
  - PANCREATITIS ACUTE [None]
  - SEPSIS [None]
